FAERS Safety Report 5660409-5 (Version None)
Quarter: 2008Q1

REPORT INFORMATION
  Report Type: 
  Country: None (occurrence: None)
  Receive Date: 20080311
  Receipt Date: 20080305
  Transmission Date: 20080703
  Serious: Yes (Hospitalization)
  Sender: FDA-Public Use
  Company Number: US-ASTRAZENECA-2008UW04495

PATIENT
  Age: 50 Year
  Sex: Female
  Weight: 78.9 kg

DRUGS (3)
  1. ARIMIDEX [Suspect]
     Indication: BREAST CANCER
     Route: 048
     Dates: start: 20050101
  2. TIMOLOL MALEATE [Concomitant]
     Route: 047
  3. AMBIEN [Concomitant]

REACTIONS (3)
  - BLOOD CHOLESTEROL INCREASED [None]
  - COLITIS ISCHAEMIC [None]
  - WEIGHT INCREASED [None]
